FAERS Safety Report 4723422-8 (Version None)
Quarter: 2005Q3

REPORT INFORMATION
  Report Type: 
  Country: None (occurrence: None)
  Receive Date: 20050721
  Receipt Date: 20050721
  Transmission Date: 20060218
  Serious: Yes (Hospitalization)
  Sender: FDA-Public Use
  Company Number: None

PATIENT
  Age: 69 Year
  Sex: Female

DRUGS (1)
  1. CLONIDINE [Suspect]
     Indication: HYPERTENSION
     Dosage: 0.3MG TRANSDERMAL
     Route: 062

REACTIONS (4)
  - DRUG WITHDRAWAL SYNDROME [None]
  - HYPOTENSION [None]
  - REBOUND HYPERTENSION [None]
  - TREATMENT NONCOMPLIANCE [None]
